FAERS Safety Report 7032764-5 (Version None)
Quarter: 2010Q4

REPORT INFORMATION
  Report Type: 
  Country: None (occurrence: None)
  Receive Date: 20101007
  Receipt Date: 20100929
  Transmission Date: 20110411
  Serious: No
  Sender: FDA-Public Use
  Company Number: US-PFIZER INC-2010124470

PATIENT
  Sex: Female

DRUGS (3)
  1. SERTRALINE HYDROCHLORIDE [Suspect]
     Dosage: UNK
  2. SEROQUEL [Concomitant]
     Dosage: UNK
  3. RISPERDAL [Concomitant]
     Dosage: UNK

REACTIONS (2)
  - ANORGASMIA [None]
  - FEMALE SEXUAL DYSFUNCTION [None]
